FAERS Safety Report 9934552 (Version 1)
Quarter: 2014Q1

REPORT INFORMATION
  Report Type: Spontaneous
  Country: US (occurrence: US)
  Receive Date: 20140228
  Receipt Date: 20140228
  Transmission Date: 20141002
  Serious: No
  Sender: FDA-Public Use
  Company Number: US-ASTRAZENECA-2013SE80314

PATIENT
  Age: 62 Year
  Sex: Female
  Weight: 57.2 kg

DRUGS (5)
  1. TOPROL XL [Suspect]
     Indication: HYPERTENSION
     Route: 048
     Dates: start: 2007, end: 2008
  2. TOPROL XL [Suspect]
     Indication: HYPERTENSION
     Route: 048
     Dates: start: 2008, end: 2008
  3. TOPROL XL [Suspect]
     Indication: HYPERTENSION
     Route: 048
     Dates: start: 2008
  4. NORVASC [Concomitant]
     Indication: HYPERTENSION
     Dosage: 5MG
     Route: 048
     Dates: start: 2007
  5. LOSARTAN [Concomitant]
     Indication: HYPERTENSION
     Route: 048
     Dates: start: 2007

REACTIONS (4)
  - Feeling abnormal [Recovered/Resolved]
  - Heart rate increased [Recovered/Resolved]
  - Adverse event [Recovered/Resolved]
  - Therapeutic response unexpected [Unknown]
